FAERS Safety Report 9605340 (Version 1)
Quarter: 2013Q4

REPORT INFORMATION
  Report Type: Spontaneous
  Country: DE (occurrence: DE)
  Receive Date: 20131008
  Receipt Date: 20131008
  Transmission Date: 20140711
  Serious: Yes (Other)
  Sender: FDA-Public Use
  Company Number: DE-TEVA-436708GER

PATIENT
  Age: 74 Year
  Sex: Male

DRUGS (2)
  1. CISPLATIN TEVA 50 MG [Suspect]
     Indication: SMALL CELL LUNG CANCER
     Route: 042
  2. ETOPOSID [Suspect]
     Indication: SMALL CELL LUNG CANCER
     Route: 042

REACTIONS (1)
  - Guillain-Barre syndrome [Unknown]
